FAERS Safety Report 7654023-X (Version None)
Quarter: 2011Q3

REPORT INFORMATION
  Report Type: 
  Country: None (occurrence: None)
  Receive Date: 20110803
  Receipt Date: 20110725
  Transmission Date: 20111222
  Serious: Yes (Other)
  Sender: FDA-Public Use
  Company Number: PHHY2011US50279

PATIENT
  Sex: Male
  Weight: 103.86 kg

DRUGS (13)
  1. XANAX [Concomitant]
  2. GILENYA [Suspect]
     Dosage: 0.5 MG, QD
     Route: 048
  3. BACLOFEN [Concomitant]
  4. DANTRIUM [Concomitant]
  5. MICARDIS [Concomitant]
  6. CLONIDINE [Concomitant]
  7. ZANTAC [Concomitant]
  8. ZOLOFT [Concomitant]
  9. BUSPAR [Concomitant]
  10. GILENYA [Suspect]
     Indication: MULTIPLE SCLEROSIS RELAPSE
     Dosage: 0.5 MG, QD
     Route: 048
     Dates: start: 20110114, end: 20110601
  11. HYDROCHLOROTHIAZIDE [Concomitant]
  12. METHADONE HYDROCHLORIDE [Concomitant]
  13. PRILOSEC [Concomitant]

REACTIONS (5)
  - RASH [None]
  - ERYTHEMA [None]
  - PRURITUS [None]
  - BURNING SENSATION [None]
  - BLISTER [None]
